FAERS Safety Report 20795227 (Version 2)
Quarter: 2022Q2

REPORT INFORMATION
  Report Type: Spontaneous
  Country: HU (occurrence: HU)
  Receive Date: 20220506
  Receipt Date: 20220510
  Transmission Date: 20220721
  Serious: Yes (Life-Threatening)
  Sender: FDA-Public Use
  Company Number: HU-002147023-NVSC2022HU089557

PATIENT
  Age: 71 Year
  Sex: Male

DRUGS (9)
  1. IMIPENEM AND CILASTATIN [Suspect]
     Active Substance: CILASTATIN SODIUM\IMIPENEM
     Indication: Urosepsis
     Dosage: UNK
     Route: 051
  2. CEFTAZIDIME SODIUM [Suspect]
     Active Substance: CEFTAZIDIME SODIUM
     Indication: Urosepsis
     Dosage: UNK
     Route: 051
  3. CEFTAZIDIME SODIUM [Suspect]
     Active Substance: CEFTAZIDIME SODIUM
     Dosage: UNK
     Route: 051
  4. AMIKACIN SULFATE [Suspect]
     Active Substance: AMIKACIN SULFATE
     Indication: Urosepsis
     Dosage: UNK
     Route: 065
  5. FLUCONAZOLE [Suspect]
     Active Substance: FLUCONAZOLE
     Indication: Urosepsis
     Dosage: UNK
     Route: 051
  6. FLUCONAZOLE [Suspect]
     Active Substance: FLUCONAZOLE
     Dosage: UNK
     Route: 051
  7. VANCOMYCIN [Suspect]
     Active Substance: VANCOMYCIN
     Indication: Urosepsis
     Dosage: UNK
     Route: 051
  8. VANCOMYCIN [Suspect]
     Active Substance: VANCOMYCIN
     Dosage: UNK
     Route: 051
  9. VANCOMYCIN [Suspect]
     Active Substance: VANCOMYCIN
     Dosage: UNK
     Route: 051

REACTIONS (2)
  - Product use in unapproved indication [Unknown]
  - Candida infection [Unknown]

NARRATIVE: CASE EVENT DATE: 20190201
